FAERS Safety Report 7313980-1 (Version None)
Quarter: 2011Q1

REPORT INFORMATION
  Report Type: 
  Country: None (occurrence: None)
  Receive Date: 20110225
  Receipt Date: 20110214
  Transmission Date: 20110831
  Serious: Yes (Other)
  Sender: FDA-Public Use
  Company Number: PHHY2011NO12609

PATIENT
  Sex: Female

DRUGS (2)
  1. ZYPREXA [Suspect]
  2. LEPONEX [Suspect]

REACTIONS (6)
  - MUSCLE TWITCHING [None]
  - SUICIDE ATTEMPT [None]
  - POOR PERSONAL HYGIENE [None]
  - WEIGHT INCREASED [None]
  - LOSS OF CONSCIOUSNESS [None]
  - AMNESIA [None]
